FAERS Safety Report 16471494 (Version 1)
Quarter: 2019Q2

REPORT INFORMATION
  Report Type: Spontaneous
  Country: ES (occurrence: ES)
  Receive Date: 20190624
  Receipt Date: 20190624
  Transmission Date: 20190711
  Serious: Yes (Hospitalization, Other)
  Sender: FDA-Public Use
  Company Number: ES-BAUSCH-BL-2019-017953

PATIENT
  Age: 61 Year
  Sex: Female

DRUGS (1)
  1. SPIRAXIN [Suspect]
     Active Substance: RIFAXIMIN
     Indication: DIVERTICULUM
     Dosage: 2 DOSAGE FORMS TWICE DAILY (2-0-2)?THERAPY DURATION: 4 MONTHS
     Route: 048
     Dates: start: 20180518, end: 20180918

REACTIONS (4)
  - Autoimmune hepatitis [Recovering/Resolving]
  - Hypertransaminasaemia [Unknown]
  - Abdominal discomfort [Unknown]
  - Decreased appetite [Unknown]

NARRATIVE: CASE EVENT DATE: 2018
